FAERS Safety Report 7488138-6 (Version None)
Quarter: 2011Q2

REPORT INFORMATION
  Report Type: 
  Country: None (occurrence: None)
  Receive Date: 20110518
  Receipt Date: 20110512
  Transmission Date: 20111010
  Serious: Yes (Death, Life-Threatening)
  Sender: FDA-Public Use
  Company Number: GB-PFIZER INC-2011102965

PATIENT
  Age: 43 Year
  Sex: Male
  Weight: 106 kg

DRUGS (9)
  1. NEBIDO [Concomitant]
     Indication: BLOOD FOLLICLE STIMULATING HORMONE DECREASED
  2. SOMATROPIN [Suspect]
     Indication: HYPOPITUITARISM
     Dosage: 0.5 MG/DAY (7 INJECTIONS/WEEK)
     Route: 058
     Dates: start: 19980319
  3. NEBIDO [Concomitant]
     Indication: HYPOGONADISM
     Dosage: 1000 MG, UNK
     Dates: start: 20081211
  4. NEBIDO [Concomitant]
     Indication: BLOOD LUTEINISING HORMONE DECREASED
  5. FEXOFENADINE [Concomitant]
     Indication: ANTIALLERGIC THERAPY
     Dosage: 120 UNITS UNKNOWN, 1X/DAY
     Dates: start: 20081211
  6. CALCICHEW-D3 [Concomitant]
     Indication: VITAMIN D DEFICIENCY
     Dosage: 1 DF, UNK
     Dates: start: 20081211
  7. AMITRIPTYLINE HYDROCHLORIDE [Concomitant]
     Indication: DEPRESSION
     Dosage: 10 MG, UNK
     Dates: start: 20081211
  8. FLUOXETINE [Concomitant]
     Indication: DEPRESSION
     Dosage: 10 MG, UNK
     Dates: start: 20081211
  9. IBUPROFEN [Concomitant]
     Indication: PAIN
     Dosage: 1200 UNKNOWN
     Dates: start: 20081211

REACTIONS (1)
  - DEATH [None]
